FAERS Safety Report 12373976 (Version 1)
Quarter: 2016Q2

REPORT INFORMATION
  Report Type: Spontaneous
  Country: GB (occurrence: GB)
  Receive Date: 20160517
  Receipt Date: 20160517
  Transmission Date: 20160815
  Serious: Yes (Other)
  Sender: FDA-Public Use
  Company Number: GB-CIPLA LTD.-2016GB04820

PATIENT

DRUGS (3)
  1. CISPLATIN. [Suspect]
     Active Substance: CISPLATIN
     Indication: PANCREATIC CARCINOMA
     Dosage: 30 MG/M2, ON WEEKS 1, 2, 4 AND 5 DURING RADIOTHERAPY
     Route: 065
  2. NELFINAVIR [Suspect]
     Active Substance: NELFINAVIR
     Indication: PANCREATIC CARCINOMA
     Dosage: 1250 MG, BID 3 TO 10 DAYS BEFORE STARTING CRT, CONTINUED UNTIL LAST DAY OF CRT
     Route: 065
  3. GEMCITABINE [Suspect]
     Active Substance: GEMCITABINE\GEMCITABINE HYDROCHLORIDE
     Indication: PANCREATIC CARCINOMA
     Dosage: 1000 MG/M2, ON WEEKS 1, 2, 4 AND 5 DURING RADIOTHERAPY
     Route: 065

REACTIONS (1)
  - Syncope [Unknown]
